FAERS Safety Report 8473937-4 (Version None)
Quarter: 2012Q2

REPORT INFORMATION
  Report Type: 
  Country: None (occurrence: None)
  Receive Date: 20120628
  Receipt Date: 20120326
  Transmission Date: 20120825
  Serious: Yes (Death)
  Sender: FDA-Public Use
  Company Number: US-MYLANLABS-2012S1003324

PATIENT
  Age: 70 Year
  Sex: Female

DRUGS (16)
  1. CEFEPIME [Concomitant]
  2. NIACIN [Concomitant]
  3. NOVOLOG [Concomitant]
  4. DUONEB [Concomitant]
  5. LANTUS [Concomitant]
  6. CLOZAPINE [Suspect]
     Route: 048
     Dates: end: 20111201
  7. VANCOMYCIN [Concomitant]
  8. DIOVAN [Concomitant]
  9. OXYCODONE HCL [Concomitant]
  10. OXYBUTYNIN [Concomitant]
  11. CITALOPRAM HYDROBROMIDE [Concomitant]
  12. ADVAIR DISKUS 100/50 [Concomitant]
  13. ABILIFY [Concomitant]
  14. CLOZAPINE [Suspect]
     Route: 048
     Dates: end: 20111201
  15. FENOFIBRATE [Concomitant]
  16. ASPIRIN [Concomitant]

REACTIONS (1)
  - DEATH [None]
